FAERS Safety Report 4920799-5 (Version None)
Quarter: 2006Q1

REPORT INFORMATION
  Report Type: 
  Country: None (occurrence: None)
  Receive Date: 20060217
  Receipt Date: 20060201
  Transmission Date: 20060701
  Serious: Yes (Hospitalization)
  Sender: FDA-Public Use
  Company Number: US200602000430

PATIENT
  Age: 71 Year
  Sex: Male

DRUGS (7)
  1. HUMULIN R [Suspect]
     Indication: DIABETES MELLITUS
  2. HUMULIN 70/30 [Suspect]
     Indication: DIABETES MELLITUS
  3. HUMULIN N [Suspect]
     Indication: DIABETES MELLITUS
  4. HUMALOG [Suspect]
     Indication: DIABETES MELLITUS
  5. HUMALOG MIX 75/25 [Suspect]
  6. AVANDIA [Concomitant]
  7. LANTUS [Concomitant]

REACTIONS (15)
  - BLINDNESS [None]
  - BLISTER [None]
  - BLOOD GLUCOSE INCREASED [None]
  - BRONCHITIS [None]
  - CARDIAC FAILURE CONGESTIVE [None]
  - CATARACT [None]
  - DRY SKIN [None]
  - DYSPNOEA [None]
  - HUNGER [None]
  - OEDEMA [None]
  - PRURITUS [None]
  - RASH [None]
  - SINUS DISORDER [None]
  - SWELLING FACE [None]
  - VISUAL ACUITY REDUCED [None]
